FAERS Safety Report 13378141 (Version 1)
Quarter: 2017Q1

REPORT INFORMATION
  Report Type: Spontaneous
  Country: CN (occurrence: CN)
  Receive Date: 20170328
  Receipt Date: 20170328
  Transmission Date: 20170429
  Serious: Yes (Other)
  Sender: FDA-Public Use
  Company Number: CN-BAYER-2017-058890

PATIENT
  Age: 70 Year
  Sex: Male

DRUGS (4)
  1. CLOPIDOGREL [Interacting]
     Active Substance: CLOPIDOGREL BISULFATE
     Dosage: UNK
  2. VALSARTAN. [Concomitant]
     Active Substance: VALSARTAN
     Indication: BLOOD PRESSURE MANAGEMENT
     Dosage: UNK
  3. GLIQUIDONE [Concomitant]
     Active Substance: GLIQUIDONE
     Indication: BLOOD GLUCOSE
     Dosage: UNK
  4. ASPIRIN. [Suspect]
     Active Substance: ASPIRIN
     Dosage: 100 MG, UNK
     Route: 048

REACTIONS (8)
  - Cerebellar infarction [None]
  - Labelled drug-drug interaction medication error [None]
  - Cerebral haemorrhage [None]
  - Dizziness [None]
  - Drug administration error [None]
  - White matter lesion [None]
  - Vomiting [None]
  - Headache [None]
